FAERS Safety Report 7421629-2 (Version None)
Quarter: 2011Q2

REPORT INFORMATION
  Report Type: 
  Country: None (occurrence: None)
  Receive Date: 20110418
  Receipt Date: 20110407
  Transmission Date: 20111010
  Serious: Yes (Other)
  Sender: FDA-Public Use
  Company Number: NZ-BAXTER-2011BH010855

PATIENT
  Age: 48 Year
  Sex: Female

DRUGS (2)
  1. SODIUM CHLORIDE 0.9% IN PLASTIC CONTAINER [Suspect]
     Indication: MEDICATION DILUTION
     Route: 042
     Dates: start: 20110407
  2. DAUNORUBICIN HYDROCHLORIDE [Suspect]
     Indication: ANTIBIOTIC THERAPY
     Route: 042
     Dates: start: 20110407

REACTIONS (1)
  - CARDIOMYOPATHY [None]
